FAERS Safety Report 9023786 (Version 1)
Quarter: 2013Q1

REPORT INFORMATION
  Report Type: Spontaneous
  Country: US (occurrence: US)
  Receive Date: 20130121
  Receipt Date: 20130121
  Transmission Date: 20140127
  Serious: No
  Sender: FDA-Public Use
  Company Number: US-PFIZER INC-2013024526

PATIENT
  Age: 43 Year
  Sex: Female
  Weight: 63.49 kg

DRUGS (1)
  1. LYRICA [Suspect]
     Dosage: UNK, SINGLE
     Dates: start: 20130118, end: 20130118

REACTIONS (3)
  - Euphoric mood [Unknown]
  - Feeling abnormal [Unknown]
  - Feeling drunk [Unknown]
